FAERS Safety Report 7558939-4 (Version None)
Quarter: 2011Q2

REPORT INFORMATION
  Report Type: 
  Country: None (occurrence: None)
  Receive Date: 20110613
  Receipt Date: 20110609
  Transmission Date: 20111010
  Serious: Yes (Hospitalization, Other)
  Sender: FDA-Public Use
  Company Number: 1000019323

PATIENT
  Age: 94 Year
  Sex: Female

DRUGS (14)
  1. DAFALGAN (PARACETAMOL, CODEINE PHOSPHATE) (TABLETS) (PARACETAMOL, CODE [Concomitant]
  2. FUROSEMIDE [Concomitant]
  3. MEMANTINE [Suspect]
     Dates: end: 20101209
  4. MEMANTINE [Suspect]
     Dosage: 10 MG (10 MG, 1 IN 1 D), ORAL; 5 MG (5 MG, 1 IN 1 D), ORAL
     Route: 048
     Dates: start: 20101227, end: 20110125
  5. MEMANTINE [Suspect]
     Dosage: 10 MG (10 MG, 1 IN 1 D), ORAL; 5 MG (5 MG, 1 IN 1 D), ORAL
     Route: 048
     Dates: start: 20110126, end: 20110202
  6. CEFUROXIME [Suspect]
     Dosage: 3000 MG (1500 MG, 2 IN 1 D), INTRAVENOUS (NOT OTHERWISE SPECIFIED)
     Route: 042
     Dates: start: 20101210, end: 20101213
  7. LEVOTHYROXINE SODIUM [Suspect]
     Dosage: 100 MICROGRAM (100 MCG, 1 IN 1 D) LONG TERM TREATMENT-
  8. ASPIRIN CARDIO (ACETYLSALICYLIC ACID) (TABLETS) (ACETYLSALICYLIC ACID) [Concomitant]
  9. TORSEMIDE [Suspect]
     Dosage: 10 MG (10 MG, 1 IN 1 D); 25 MG (25 MG, 1 IN 1 D)
     Dates: start: 20101213
  10. TORSEMIDE [Suspect]
     Dosage: 10 MG (10 MG, 1 IN 1 D); 25 MG (25 MG, 1 IN 1 D)
     Dates: start: 20101221
  11. TEMGESIC (BUPRENORPHINE) (TABLETS) (BUPRENORPHINE) [Concomitant]
  12. LASIX [Concomitant]
  13. CALCIPARINE [Concomitant]
  14. MEMANTINE (MEMANTINE HYROCHLORIDE) (TABLETS) [Suspect]
     Dosage: 20 MG (10 MG, 2 IN 1 D), ORAL
     Route: 048
     Dates: start: 20101223, end: 20101226

REACTIONS (6)
  - FALL [None]
  - DRUG PRESCRIBING ERROR [None]
  - DERMATITIS ALLERGIC [None]
  - FEMORAL NECK FRACTURE [None]
  - RENAL FAILURE ACUTE [None]
  - RASH ERYTHEMATOUS [None]
